FAERS Safety Report 5194428-2 (Version None)
Quarter: 2006Q4

REPORT INFORMATION
  Report Type: 
  Country: None (occurrence: None)
  Receive Date: 20061221
  Receipt Date: 20061215
  Transmission Date: 20070319
  Serious: Yes (Other)
  Sender: FDA-Public Use
  Company Number: HQWYE324118DEC06

PATIENT
  Age: 55 Year
  Sex: Female

DRUGS (13)
  1. .... [Suspect]
  2. EFFEXOR XR [Suspect]
     Indication: ANXIETY
     Dosage: SEE IMAGE
     Route: 048
     Dates: start: 20060726, end: 20060801
  3. EFFEXOR XR [Suspect]
     Indication: ANXIETY
     Dosage: SEE IMAGE
     Route: 048
     Dates: start: 20060802, end: 20061103
  4. EFFEXOR XR [Suspect]
     Indication: ANXIETY
     Dosage: SEE IMAGE
     Route: 048
     Dates: start: 20061104, end: 20061125
  5. EFFEXOR XR [Suspect]
     Indication: ANXIETY
     Dosage: SEE IMAGE
     Route: 048
     Dates: start: 20061126
  6. TRAMADOL HCL [Suspect]
     Indication: PAIN
     Dosage: 100 MG 3-4 TIMES A DAY, ORAL
     Route: 048
  7. TYLENOL [Concomitant]
  8. KLONOPIN [Concomitant]
  9. BACLOFEN [Concomitant]
  10. BENTYL [Concomitant]
  11. ESTROPIPATE [Concomitant]
  12. CENTRUM SILVER (MULTIVITAMIN/MULTIMINERAL) [Concomitant]
  13. PERDIEM (PSYLLIUM HYDROPHILIC MUCILLOID/SENNA FRUIT) [Concomitant]

REACTIONS (12)
  - ANXIETY [None]
  - CONDITION AGGRAVATED [None]
  - CRYING [None]
  - DEPRESSION [None]
  - DRUG INTERACTION [None]
  - DRUG WITHDRAWAL SYNDROME [None]
  - PAIN [None]
  - PALPITATIONS [None]
  - PANIC ATTACK [None]
  - SPEECH DISORDER [None]
  - SUICIDAL IDEATION [None]
  - TREMOR [None]
